FAERS Safety Report 5061976-5 (Version None)
Quarter: 2006Q3

REPORT INFORMATION
  Report Type: 
  Country: None (occurrence: None)
  Receive Date: 20060726
  Receipt Date: 20060606
  Transmission Date: 20061208
  Serious: Yes (Hospitalization)
  Sender: FDA-Public Use
  Company Number: US-AVENTIS-200615136US

PATIENT
  Sex: Female
  Weight: 59 kg

DRUGS (5)
  1. KETEK [Suspect]
     Indication: UPPER RESPIRATORY TRACT INFECTION
     Route: 048
     Dates: start: 20051201, end: 20051205
  2. GLUCOSAMINE W/CHONDROITIN SULFATES [Concomitant]
     Route: 048
  3. CHROMIUM [Concomitant]
     Indication: BLOOD GLUCOSE ABNORMAL
     Route: 048
  4. ESTRACE [Concomitant]
     Indication: HORMONE REPLACEMENT THERAPY
     Route: 048
  5. IBUPROFEN [Concomitant]
     Route: 048

REACTIONS (6)
  - ABDOMINAL PAIN [None]
  - ALANINE AMINOTRANSFERASE INCREASED [None]
  - ASPARTATE AMINOTRANSFERASE INCREASED [None]
  - EOSINOPHIL COUNT INCREASED [None]
  - FATIGUE [None]
  - HEPATOTOXICITY [None]
